FAERS Safety Report 19477651 (Version 1)
Quarter: 2021Q2

REPORT INFORMATION
  Report Type: Spontaneous
  Country: US (occurrence: US)
  Receive Date: 20210630
  Receipt Date: 20210630
  Transmission Date: 20210717
  Serious: No
  Sender: FDA-Public Use
  Company Number: None

PATIENT
  Age: 39 Year
  Sex: Female
  Weight: 50 kg

DRUGS (2)
  1. SULFASALAZINE (SULFASALAZINE 500MG TAB, EC) [Suspect]
     Active Substance: SULFASALAZINE
     Indication: RHEUMATOID ARTHRITIS
     Route: 048
     Dates: start: 20200918, end: 20200929
  2. HYDROXYCHLOROQUINE (HYDROXYCHLOROQUINE  SO4 200MG TAB) [Suspect]
     Active Substance: HYDROXYCHLOROQUINE SULFATE
     Indication: RHEUMATOID ARTHRITIS
     Route: 048
     Dates: start: 20200918, end: 20200929

REACTIONS (6)
  - Hyponatraemia [None]
  - Rash [None]
  - Hypovolaemic shock [None]
  - Sepsis [None]
  - Pyrexia [None]
  - Serum sickness-like reaction [None]

NARRATIVE: CASE EVENT DATE: 20200929
